FAERS Safety Report 4689280-5 (Version None)
Quarter: 2005Q2

REPORT INFORMATION
  Report Type: 
  Country: None (occurrence: None)
  Receive Date: 20050608
  Receipt Date: 20050323
  Transmission Date: 20051028
  Serious: No
  Sender: FDA-Public Use
  Company Number: 2005-BP-04940BP

PATIENT
  Age: 72 Year
  Sex: Female
  Weight: 77.1 kg

DRUGS (10)
  1. SPIRIVA [Suspect]
     Indication: CHRONIC OBSTRUCTIVE PULMONARY DISEASE
     Dosage: 18 MCG (18 MCG), IH
     Route: 055
     Dates: start: 20041001, end: 20041027
  2. SYNTHROID [Concomitant]
  3. ADVAIR DISKUS 100/50 [Concomitant]
  4. FLONASE [Concomitant]
  5. ATROVENT/ALBUTEROL [Concomitant]
  6. LESCOL XL [Concomitant]
  7. ZELNORM [Concomitant]
  8. MICARDIS [Concomitant]
  9. MUCINEX (GUAIFENESIN) [Concomitant]
  10. PRILOSEC [Concomitant]

REACTIONS (4)
  - EYE OEDEMA [None]
  - OEDEMA PERIPHERAL [None]
  - PRURITUS GENERALISED [None]
  - RASH GENERALISED [None]
